FAERS Safety Report 17685500 (Version 1)
Quarter: 2020Q2

REPORT INFORMATION
  Report Type: Spontaneous
  Country: US (occurrence: US)
  Receive Date: 20200420
  Receipt Date: 20200420
  Transmission Date: 20200714
  Serious: Yes (Life-Threatening, Disabling)
  Sender: FDA-Public Use
  Company Number: None

PATIENT
  Age: 35 Year
  Sex: Female
  Weight: 74.25 kg

DRUGS (7)
  1. SPIRIVA [Suspect]
     Active Substance: TIOTROPIUM BROMIDE MONOHYDRATE
     Indication: ASTHMA
     Route: 055
     Dates: start: 20200418, end: 20200419
  2. ZYXAL [Concomitant]
  3. PREDNISONE. [Concomitant]
     Active Substance: PREDNISONE
  4. DULERA [Concomitant]
     Active Substance: FORMOTEROL FUMARATE DIHYDRATE\MOMETASONE FUROATE
  5. PREVACID [Concomitant]
     Active Substance: LANSOPRAZOLE
  6. LEVALBUTEROL. [Concomitant]
     Active Substance: LEVALBUTEROL
  7. SINGULAIR [Concomitant]
     Active Substance: MONTELUKAST SODIUM

REACTIONS (5)
  - Vein rupture [None]
  - Palpitations [None]
  - Bronchospasm [None]
  - Drug hypersensitivity [None]
  - Rash [None]

NARRATIVE: CASE EVENT DATE: 20200419
